FAERS Safety Report 9633098 (Version 2)
Quarter: 2013Q4

REPORT INFORMATION
  Report Type: Spontaneous
  Country: CA (occurrence: CA)
  Receive Date: 20131018
  Receipt Date: 20131018
  Transmission Date: 20140711
  Serious: Yes (Life-Threatening, Hospitalization, Other)
  Sender: FDA-Public Use
  Company Number: CA-ABBVIE-13P-028-1036611-00

PATIENT
  Age: 45 Year
  Sex: Female
  Weight: 58 kg

DRUGS (8)
  1. HUMIRA [Suspect]
     Indication: RHEUMATOID ARTHRITIS
     Route: 058
     Dates: start: 20111020, end: 20111103
  2. FOLIC ACID [Concomitant]
     Indication: PRODUCT USED FOR UNKNOWN INDICATION
     Dosage: 5MG 6 DAYS OUT OF 7
     Route: 048
  3. IBUPROFEN [Concomitant]
     Indication: PRODUCT USED FOR UNKNOWN INDICATION
     Route: 048
  4. METHOTREXATE [Concomitant]
     Indication: PRODUCT USED FOR UNKNOWN INDICATION
     Route: 058
  5. PANTOLOC [Concomitant]
     Indication: PRODUCT USED FOR UNKNOWN INDICATION
     Route: 048
  6. PLAQUENIL [Concomitant]
     Indication: PRODUCT USED FOR UNKNOWN INDICATION
     Route: 048
  7. SALAZOPYRINE [Concomitant]
     Indication: PRODUCT USED FOR UNKNOWN INDICATION
     Route: 048
  8. SYNTHROID [Concomitant]
     Indication: PRODUCT USED FOR UNKNOWN INDICATION
     Route: 048

REACTIONS (12)
  - Amnesia [Recovered/Resolved]
  - Grand mal convulsion [Recovered/Resolved]
  - Urinary incontinence [Recovered/Resolved]
  - Grand mal convulsion [Recovered/Resolved]
  - Urinary incontinence [Unknown]
  - Amnesia [Unknown]
  - Grand mal convulsion [Recovered/Resolved]
  - Urinary incontinence [Unknown]
  - Amnesia [Unknown]
  - Grand mal convulsion [Recovered/Resolved]
  - Urinary incontinence [Unknown]
  - Amnesia [Unknown]
